FAERS Safety Report 4514089-2 (Version None)
Quarter: 2004Q4

REPORT INFORMATION
  Report Type: 
  Country: None (occurrence: None)
  Receive Date: 20041130
  Receipt Date: 20040929
  Transmission Date: 20050328
  Serious: Yes (Death, Hospitalization, Other)
  Sender: FDA-Public Use
  Company Number: PHBS2004JP12900

PATIENT
  Age: 71 Year
  Sex: Male
  Weight: 53 kg

DRUGS (7)
  1. HERBESSOR R [Suspect]
     Dosage: 200 MG/DAY
     Route: 048
     Dates: start: 20030623, end: 20040127
  2. SIGMART [Suspect]
     Dosage: 15 MG/DAY
     Route: 048
     Dates: start: 20030623, end: 20040127
  3. ITOROL [Suspect]
     Dosage: 60 MG/DAY
     Route: 048
     Dates: start: 20030623, end: 20040127
  4. DEPAKENE [Suspect]
     Indication: EPILEPSY
     Dosage: 400 MG/DAY
     Route: 048
     Dates: start: 20030925, end: 20031209
  5. ALEVIATIN [Concomitant]
     Indication: EPILEPSY
     Route: 065
     Dates: start: 20040119
  6. TEGRETOL [Suspect]
     Indication: EPILEPSY
     Dosage: 150 MG/DAY
     Route: 048
     Dates: start: 20031209, end: 20031215
  7. TEGRETOL [Suspect]
     Dosage: 100 MG/DAY
     Route: 048
     Dates: start: 20031215, end: 20040127

REACTIONS (18)
  - ANURIA [None]
  - BLOOD CREATININE INCREASED [None]
  - BLOOD UREA INCREASED [None]
  - BRUGADA SYNDROME [None]
  - DRUG ERUPTION [None]
  - EPILEPSY [None]
  - HAEMATOCRIT DECREASED [None]
  - HAEMODIALYSIS [None]
  - HAEMOGLOBIN DECREASED [None]
  - NAUSEA [None]
  - NEPHRITIS INTERSTITIAL [None]
  - OLIGURIA [None]
  - PYREXIA [None]
  - RASH PAPULAR [None]
  - RENAL FAILURE ACUTE [None]
  - RENAL TUBULAR ATROPHY [None]
  - VENTRICULAR FIBRILLATION [None]
  - VOMITING [None]
